FAERS Safety Report 20482230 (Version 2)
Quarter: 2022Q2

REPORT INFORMATION
  Report Type: Spontaneous
  Country: US (occurrence: US)
  Receive Date: 20220216
  Receipt Date: 20220628
  Transmission Date: 20220720
  Serious: No
  Sender: FDA-Public Use
  Company Number: US-BEH-2022142158

PATIENT
  Sex: Female

DRUGS (3)
  1. HIZENTRA [Suspect]
     Active Substance: HUMAN IMMUNOGLOBULIN G
     Indication: Immunodeficiency common variable
     Dosage: 60 MILLILITER (REPORTED AS CC [CUBIC CENTIMETRES]) , QW
     Route: 058
     Dates: start: 2010
  2. COENZYME Q10 [Concomitant]
     Active Substance: DIETARY SUPPLEMENT\UBIDECARENONE
  3. NICOTINAMIDE [Concomitant]
     Active Substance: NIACINAMIDE

REACTIONS (2)
  - Hepatic enzyme increased [Unknown]
  - Pancreatic cyst [Unknown]
